FAERS Safety Report 4289925-8 (Version None)
Quarter: 2004Q1

REPORT INFORMATION
  Report Type: 
  Country: None (occurrence: None)
  Receive Date: 20040209
  Receipt Date: 20040203
  Transmission Date: 20041129
  Serious: Yes (Hospitalization)
  Sender: FDA-Public Use
  Company Number: 200410438FR

PATIENT
  Age: 64 Year
  Sex: Female

DRUGS (2)
  1. DAONIL [Suspect]
     Indication: DIABETES MELLITUS NON-INSULIN-DEPENDENT
     Route: 048
  2. GLEEVEC [Suspect]
     Indication: CHRONIC MYELOID LEUKAEMIA
     Route: 048
     Dates: start: 20031029, end: 20031219

REACTIONS (4)
  - PLATELET COUNT DECREASED [None]
  - RETINAL HAEMORRHAGE [None]
  - THROMBOSIS [None]
  - VISUAL ACUITY REDUCED [None]
